FAERS Safety Report 8865183 (Version 1)
Quarter: 2012Q4

REPORT INFORMATION
  Report Type: 
  Country: US (occurrence: US)
  Receive Date: 20121024
  Receipt Date: 20121024
  Transmission Date: 20130627
  Serious: No
  Sender: FDA-Public Use
  Company Number: US-AMGEN-USASP2012001587

PATIENT
  Age: 67 Year
  Sex: Female

DRUGS (11)
  1. ENBREL [Suspect]
     Indication: PRODUCT USED FOR UNKNOWN INDICATION
     Dosage: 50 mg, qwk
  2. ENBREL [Suspect]
     Dosage: 50 mg, qmo
     Route: 058
     Dates: start: 20110705
  3. FOLIC ACID [Concomitant]
     Dosage: 1 mg, UNK
  4. MULTIVITAMIN                       /00097801/ [Concomitant]
     Dosage: UNK
  5. ADVIL                              /00044201/ [Concomitant]
     Dosage: 200 mg, UNK
  6. SELENIMIN [Concomitant]
     Dosage: UNK
  7. FISH OIL [Concomitant]
     Dosage: UNK
  8. LECITHIN [Concomitant]
     Dosage: 19 UNK, UNK
  9. CALCIUM +D                         /00188401/ [Concomitant]
     Dosage: UNK
  10. COQ10                              /00517201/ [Concomitant]
     Dosage: 10 mg, UNK
  11. TYLENOL ARTHRITIS [Concomitant]
     Dosage: 650 mg, UNK

REACTIONS (2)
  - Increased tendency to bruise [Unknown]
  - Haemorrhagic diathesis [Unknown]
